FAERS Safety Report 7877672-2 (Version None)
Quarter: 2011Q4

REPORT INFORMATION
  Report Type: 
  Country: None (occurrence: None)
  Receive Date: 20111031
  Receipt Date: 20111031
  Transmission Date: 20120403
  Serious: Yes (Other)
  Sender: FDA-Public Use
  Company Number: None

PATIENT
  Age: 81 Year
  Sex: Male
  Weight: 78.017 kg

DRUGS (1)
  1. NILUTAMIDE [Suspect]
     Indication: PROSTATE CANCER
     Dosage: 150
     Route: 048

REACTIONS (1)
  - BLINDNESS TRANSIENT [None]
